FAERS Safety Report 16864683 (Version 2)
Quarter: 2019Q4

REPORT INFORMATION
  Report Type: Spontaneous
  Country: FR (occurrence: FR)
  Receive Date: 20190929
  Receipt Date: 20191015
  Transmission Date: 20200122
  Serious: No
  Sender: FDA-Public Use
  Company Number: PHHY2019FR225018

PATIENT
  Sex: Female

DRUGS (1)
  1. AZARGA [Suspect]
     Active Substance: BRINZOLAMIDE\TIMOLOL MALEATE
     Indication: PRODUCT USED FOR UNKNOWN INDICATION
     Dosage: 1 GTT, BID (1DROP IN MORNING AND 1 DROP IN EVENING DURING 12 MONTHS)
     Route: 047

REACTIONS (3)
  - Product storage error [Unknown]
  - Eye discharge [Unknown]
  - Intraocular pressure increased [Unknown]
